FAERS Safety Report 19320242 (Version 1)
Quarter: 2021Q2

REPORT INFORMATION
  Report Type: Spontaneous
  Country: US (occurrence: US)
  Receive Date: 20210527
  Receipt Date: 20210527
  Transmission Date: 20210717
  Serious: Yes (Other)
  Sender: FDA-Public Use
  Company Number: None

PATIENT
  Age: 64 Year
  Sex: Male
  Weight: 88.9 kg

DRUGS (3)
  1. ROSUVASTATIN. [Suspect]
     Active Substance: ROSUVASTATIN
  2. METOPROLOL. [Concomitant]
     Active Substance: METOPROLOL
     Dates: start: 20210218, end: 20210527
  3. IOSARTAN [Concomitant]
     Dates: start: 20210218, end: 20210527

REACTIONS (3)
  - Product substitution issue [None]
  - Rash [None]
  - Pruritus [None]
